FAERS Safety Report 7925701-X (Version None)
Quarter: 2011Q4

REPORT INFORMATION
  Report Type: 
  Country: None (occurrence: None)
  Receive Date: 20111118
  Receipt Date: 20110411
  Transmission Date: 20120403
  Serious: No
  Sender: FDA-Public Use
  Company Number: US-AMGEN-USASP2011019179

PATIENT
  Age: 45 Year
  Sex: Female

DRUGS (2)
  1. ENBREL [Suspect]
     Indication: RHEUMATOID ARTHRITIS
     Dosage: 50 MG, QWK
     Dates: start: 20110118, end: 20110329
  2. TREXALL [Concomitant]
     Dosage: 1 MG, QWK
     Dates: start: 20100301

REACTIONS (6)
  - OROPHARYNGEAL PAIN [None]
  - NASAL CONGESTION [None]
  - HEADACHE [None]
  - INJECTION SITE ERYTHEMA [None]
  - INJECTION SITE MASS [None]
  - EAR DISCOMFORT [None]
